FAERS Safety Report 24802120 (Version 1)
Quarter: 2025Q1

REPORT INFORMATION
  Report Type: Spontaneous
  Country: US (occurrence: US)
  Receive Date: 20250103
  Receipt Date: 20250103
  Transmission Date: 20250408
  Serious: No
  Sender: SANOFI AVENTIS
  Company Number: US-SA-2024SA385411

PATIENT
  Age: 8 Year
  Sex: Female
  Weight: 20.73 kg

DRUGS (4)
  1. DUPIXENT [Suspect]
     Active Substance: DUPILUMAB
     Indication: Dermatitis atopic
     Dosage: 300 MG, Q4W
  2. HYDROCORTISONE [Concomitant]
     Active Substance: HYDROCORTISONE
  3. CYPROHEPTADINE [Concomitant]
     Active Substance: CYPROHEPTADINE
  4. EPINEPHRINE [Concomitant]
     Active Substance: EPINEPHRINE

REACTIONS (2)
  - Rash [Unknown]
  - Therapeutic response shortened [Unknown]
